FAERS Safety Report 8915504 (Version 2)
Quarter: 2013Q1

REPORT INFORMATION
  Report Type: Spontaneous
  Country: US (occurrence: US)
  Receive Date: 20121119
  Receipt Date: 20130125
  Transmission Date: 20140127
  Serious: Yes (Other)
  Sender: FDA-Public Use
  Company Number: US-PFIZER INC-2012285083

PATIENT
  Age: 51 Year
  Sex: Female

DRUGS (4)
  1. DETROL LA [Suspect]
     Indication: HYPERTONIC BLADDER
     Dosage: 4 MG, EVERY 12 HRS
     Route: 048
     Dates: start: 20120813
  2. DETROL LA [Suspect]
     Dosage: 4 MG, 1X/DAY
     Route: 048
     Dates: end: 20120820
  3. METOPROLOL [Concomitant]
     Dosage: 100 MG, DAILY
     Route: 048
  4. DIOVAN HCT [Concomitant]
     Dosage: 320/25, DAILY

REACTIONS (3)
  - Hypertension [Recovered/Resolved]
  - Dizziness [Recovered/Resolved]
  - Headache [Recovered/Resolved]
